FAERS Safety Report 5294497-5 (Version None)
Quarter: 2007Q1

REPORT INFORMATION
  Report Type: 
  Country: None (occurrence: None)
  Receive Date: 20070327
  Receipt Date: 20070315
  Transmission Date: 20070707
  Serious: No
  Sender: FDA-Public Use
  Company Number: 2006-151567-NL

PATIENT
  Age: 26 Year
  Sex: Female

DRUGS (1)
  1. NUVARING [Suspect]
     Dosage: DF NI
     Dates: start: 20060817, end: 20070104

REACTIONS (7)
  - ANTI-HBS ANTIBODY POSITIVE [None]
  - FOCAL NODULAR HYPERPLASIA [None]
  - HEPATIC STEATOSIS [None]
  - HEPATITIS A ANTIGEN POSITIVE [None]
  - HEPATOMEGALY [None]
  - LIVER DISORDER [None]
  - LYMPHADENOPATHY [None]
